FAERS Safety Report 25363625 (Version 1)
Quarter: 2025Q2

REPORT INFORMATION
  Report Type: Spontaneous
  Country: US (occurrence: US)
  Receive Date: 20250527
  Receipt Date: 20250527
  Transmission Date: 20250716
  Serious: No
  Sender: AVERITAS
  Company Number: US-GRUNENTHAL-2025-107460

PATIENT
  Sex: Male

DRUGS (3)
  1. QUTENZA [Suspect]
     Active Substance: CAPSAICIN
     Indication: Product used for unknown indication
     Route: 061
  2. QUTENZA [Suspect]
     Active Substance: CAPSAICIN
     Route: 061
  3. QUTENZA [Suspect]
     Active Substance: CAPSAICIN
     Route: 061

REACTIONS (1)
  - Burning sensation [Unknown]
